FAERS Safety Report 13287618 (Version 1)
Quarter: 2017Q1

REPORT INFORMATION
  Report Type: Report from Study
  Country: None (occurrence: US)
  Receive Date: 20170302
  Receipt Date: 20170302
  Transmission Date: 20170428
  Serious: Yes (Hospitalization, Other)
  Sender: FDA-Public Use
  Company Number: US-ABBVIE-17K-163-1888374-00

PATIENT
  Sex: Male

DRUGS (2)
  1. HUMIRA [Suspect]
     Active Substance: ADALIMUMAB
     Indication: MATERNAL EXPOSURE TIMING UNSPECIFIED
     Route: 064
  2. HUMIRA [Suspect]
     Active Substance: ADALIMUMAB
     Route: 063

REACTIONS (6)
  - Exposure during breast feeding [Unknown]
  - Jaundice neonatal [Recovered/Resolved]
  - Umbilical cord abnormality [Recovered/Resolved]
  - Foetal exposure during pregnancy [Unknown]
  - Umbilical cord around neck [Recovered/Resolved]
  - Transverse presentation [Recovered/Resolved]

NARRATIVE: CASE EVENT DATE: 201403
